FAERS Safety Report 5832191-X (Version None)
Quarter: 2008Q3

REPORT INFORMATION
  Report Type: 
  Country: None (occurrence: None)
  Receive Date: 20080804
  Receipt Date: 20080724
  Transmission Date: 20090109
  Serious: Yes (Hospitalization)
  Sender: FDA-Public Use
  Company Number: DE-JNJFOC-20080703550

PATIENT
  Sex: Male

DRUGS (1)
  1. REMICADE [Suspect]
     Indication: INFLAMMATION
     Route: 042

REACTIONS (3)
  - GASTRIC CANCER [None]
  - LOSS OF CONSCIOUSNESS [None]
  - SYNCOPE [None]
